FAERS Safety Report 18429244 (Version 1)
Quarter: 2020Q4

REPORT INFORMATION
  Report Type: Spontaneous
  Country: IT (occurrence: IT)
  Receive Date: 20201027
  Receipt Date: 20201027
  Transmission Date: 20210114
  Serious: Yes (Other)
  Sender: FDA-Public Use
  Company Number: IT-AUROBINDO-AUR-APL-2020-053460

PATIENT
  Age: 62 Year
  Sex: Male

DRUGS (1)
  1. KETOROLAC [Suspect]
     Active Substance: KETOROLAC TROMETHAMINE
     Indication: SCIATICA
     Dosage: 3 DOSAGE FORM, ONCE A DAY
     Route: 030
     Dates: start: 20200919, end: 20200920

REACTIONS (6)
  - Generalised oedema [Recovering/Resolving]
  - Drug hypersensitivity [Recovering/Resolving]
  - Salivary hypersecretion [Recovering/Resolving]
  - Abdominal pain upper [Recovering/Resolving]
  - Dysphagia [Recovering/Resolving]
  - Rash [Recovering/Resolving]

NARRATIVE: CASE EVENT DATE: 20200920
